FAERS Safety Report 23396975 (Version 1)
Quarter: 2024Q1

REPORT INFORMATION
  Report Type: Spontaneous
  Country: IT (occurrence: IT)
  Receive Date: 20240112
  Receipt Date: 20240112
  Transmission Date: 20240409
  Serious: Yes (Other)
  Sender: FDA-Public Use
  Company Number: IT-SHIONOGI, INC-2024000003

PATIENT

DRUGS (9)
  1. CEFIDEROCOL SULFATE TOSYLATE [Suspect]
     Active Substance: CEFIDEROCOL SULFATE TOSYLATE
     Indication: Acinetobacter infection
     Dosage: 2 G, 8 HOUR
     Route: 065
  2. CEFIDEROCOL SULFATE TOSYLATE [Suspect]
     Active Substance: CEFIDEROCOL SULFATE TOSYLATE
     Indication: Drug resistance
     Dosage: 1 G, 8 HOUR
     Route: 065
  3. CEFIDEROCOL SULFATE TOSYLATE [Suspect]
     Active Substance: CEFIDEROCOL SULFATE TOSYLATE
     Indication: Haematological infection
  4. TIGECYCLINE [Suspect]
     Active Substance: TIGECYCLINE
     Indication: Acinetobacter infection
     Dosage: 100 MG (LOADING DOSE)
     Route: 065
  5. TIGECYCLINE [Suspect]
     Active Substance: TIGECYCLINE
     Indication: Drug resistance
     Dosage: 50 MG, 12 HOUR
     Route: 065
  6. TIGECYCLINE [Suspect]
     Active Substance: TIGECYCLINE
     Indication: Haematological infection
  7. COLISTIN [Suspect]
     Active Substance: COLISTIN
     Indication: Acinetobacter infection
     Dosage: 9 MILLION UNITS(MU) (LOADING DOSE)
     Route: 065
  8. COLISTIN [Suspect]
     Active Substance: COLISTIN
     Indication: Drug resistance
     Dosage: 4.5 MILLION UNITS (MU) , 12 HOUR
     Route: 065
  9. COLISTIN [Suspect]
     Active Substance: COLISTIN
     Indication: Haematological infection

REACTIONS (2)
  - Acute kidney injury [Unknown]
  - No adverse event [Unknown]
